FAERS Safety Report 14922776 (Version 1)
Quarter: 2018Q2

REPORT INFORMATION
  Report Type: Spontaneous
  Country: US (occurrence: US)
  Receive Date: 20180503
  Receipt Date: 20180503
  Transmission Date: 20180711
  Serious: Yes (Other)
  Sender: FDA-Public Use
  Company Number: None

PATIENT
  Age: 84 Year
  Sex: Male
  Weight: 94.05 kg

DRUGS (1)
  1. VICTOZA [Suspect]
     Active Substance: LIRAGLUTIDE
     Indication: DIABETES MELLITUS
     Route: 058
     Dates: start: 20180501, end: 20180502

REACTIONS (12)
  - Presyncope [None]
  - Constipation [None]
  - Pain [None]
  - Malaise [None]
  - Cardiac disorder [None]
  - Dyspnoea [None]
  - Visual impairment [None]
  - Dizziness [None]
  - Diarrhoea [None]
  - Lung disorder [None]
  - Hyperhidrosis [None]
  - Decreased appetite [None]

NARRATIVE: CASE EVENT DATE: 20180502
